FAERS Safety Report 9753602 (Version 4)
Quarter: 2014Q1

REPORT INFORMATION
  Report Type: Report from Study
  Country: TR (occurrence: TR)
  Receive Date: 20131213
  Receipt Date: 20140220
  Transmission Date: 20141002
  Serious: Yes (Hospitalization, Other)
  Sender: FDA-Public Use
  Company Number: PHHY2013TR145535

PATIENT
  Age: 3 Year
  Sex: Male
  Weight: 12 kg

DRUGS (6)
  1. EXJADE [Suspect]
     Indication: THALASSAEMIA BETA
     Dosage: 250 MG, QD
     Route: 048
     Dates: start: 201304
  2. EXJADE [Suspect]
     Dosage: 250 MG, QD
     Route: 048
     Dates: start: 20131128, end: 20140123
  3. URSOFALK [Concomitant]
     Dosage: 1 DF, QD
     Route: 048
     Dates: start: 201304
  4. PREDNOL [Concomitant]
     Dosage: 0.5 DF, DAILY
     Route: 048
     Dates: start: 201304
  5. RITUXIMAB [Concomitant]
     Dosage: UNK UKN, UNK
     Route: 042
     Dates: start: 201310
  6. NSAID^S [Concomitant]
     Dosage: UNK UKN, UNK

REACTIONS (5)
  - Haemoglobin decreased [Recovered/Resolved]
  - Pyrexia [Recovered/Resolved]
  - Splenomegaly [Recovered/Resolved with Sequelae]
  - Liver function test abnormal [Recovered/Resolved]
  - Jaundice [Unknown]
